FAERS Safety Report 20606830 (Version 1)
Quarter: 2022Q1

REPORT INFORMATION
  Report Type: Spontaneous
  Country: US (occurrence: US)
  Receive Date: 20220317
  Receipt Date: 20220317
  Transmission Date: 20220423
  Serious: No
  Sender: FDA-Public Use
  Company Number: US-TAKEDA-2022TUS017669

PATIENT
  Sex: Female
  Weight: 100 kg

DRUGS (2)
  1. PREVACID [Suspect]
     Active Substance: LANSOPRAZOLE
     Indication: Gastrointestinal disorder prophylaxis
     Dosage: 15 MILLIGRAM, BID
     Route: 065
     Dates: start: 1995
  2. PEPCID [Concomitant]
     Active Substance: FAMOTIDINE
     Dosage: 20 MILLIGRAM, BID
     Route: 065

REACTIONS (5)
  - Skin burning sensation [Unknown]
  - Gait disturbance [Unknown]
  - Muscle tightness [Unknown]
  - Myalgia [Unknown]
  - Product use in unapproved indication [Unknown]
